FAERS Safety Report 13446821 (Version 10)
Quarter: 2019Q3

REPORT INFORMATION
  Report Type: Spontaneous
  Country: US (occurrence: US)
  Receive Date: 20170417
  Receipt Date: 20190912
  Transmission Date: 20191004
  Serious: Yes (Other)
  Sender: FDA-Public Use
  Company Number: US-PFIZER INC-2017123243

PATIENT
  Age: 56 Year
  Sex: Male
  Weight: 98.75 kg

DRUGS (2)
  1. VIAGRA [Suspect]
     Active Substance: SILDENAFIL CITRATE
     Indication: LIBIDO DECREASED
     Dosage: 100 MG, AS NEEDED
     Route: 048
     Dates: start: 2018
  2. VIAGRA [Suspect]
     Active Substance: SILDENAFIL CITRATE
     Indication: ERECTILE DYSFUNCTION
     Dosage: 100 MG, ONCE A DAY
     Route: 048
     Dates: start: 2017

REACTIONS (6)
  - Malaise [Unknown]
  - Arthropod bite [Unknown]
  - Testicular swelling [Unknown]
  - Blood pressure increased [Unknown]
  - Hydrocele [Recovered/Resolved]
  - Nasopharyngitis [Unknown]
